FAERS Safety Report 7913894-X (Version None)
Quarter: 2011Q4

REPORT INFORMATION
  Report Type: 
  Country: None (occurrence: None)
  Receive Date: 20111115
  Receipt Date: 20111108
  Transmission Date: 20120403
  Serious: Yes (Hospitalization)
  Sender: FDA-Public Use
  Company Number: FR-PFIZER INC-2011277137

PATIENT
  Age: 85 Year
  Sex: Male

DRUGS (5)
  1. CEFUROXIME [Concomitant]
     Dosage: UNK
     Dates: start: 20111005, end: 20111013
  2. CORDARONE [Suspect]
     Indication: PRODUCT USED FOR UNKNOWN INDICATION
     Dosage: 200 MG DAILY, FIVE DAYS PER WEEK
     Route: 048
     Dates: end: 20111017
  3. LANTUS [Concomitant]
  4. MODOPAR [Concomitant]
  5. ACETAMINOPHEN [Concomitant]

REACTIONS (3)
  - HYPERTHYROIDISM [None]
  - ABNORMAL BEHAVIOUR [None]
  - AGGRESSION [None]
